FAERS Safety Report 8282404-2 (Version None)
Quarter: 2012Q2

REPORT INFORMATION
  Report Type: 
  Country: None (occurrence: None)
  Receive Date: 20120410
  Receipt Date: 20120326
  Transmission Date: 20120825
  Serious: Yes (Other)
  Sender: FDA-Public Use
  Company Number: FK201200993

PATIENT
  Age: 1 Day
  Sex: Female

DRUGS (1)
  1. AMIODARONE HCL [Suspect]
     Indication: ATRIAL FLUTTER
     Dosage: 5 MG/KG, WITHIN 60 MINUTES OF DELIVERY, INTRAVENOUS (NOT OTHERWISE SPECIFIED)
     Route: 042

REACTIONS (3)
  - CONDUCTION DISORDER [None]
  - VENTRICULAR FIBRILLATION [None]
  - CARDIAC ARREST NEONATAL [None]
